FAERS Safety Report 19465822 (Version 3)
Quarter: 2021Q2

REPORT INFORMATION
  Report Type: Spontaneous
  Country: US (occurrence: US)
  Receive Date: 20210626
  Receipt Date: 20210630
  Transmission Date: 20210717
  Serious: Yes (Hospitalization, Other)
  Sender: FDA-Public Use
  Company Number: US-TEVA-2021-US-1925076

PATIENT
  Age: 77 Year
  Sex: Female

DRUGS (1)
  1. ALPRAZOLAM. [Suspect]
     Active Substance: ALPRAZOLAM
     Route: 065

REACTIONS (7)
  - Near death experience [Unknown]
  - Hospitalisation [Unknown]
  - Balance disorder [Unknown]
  - Product formulation issue [Unknown]
  - Insomnia [Unknown]
  - Restlessness [Unknown]
  - Blood pressure increased [Unknown]

NARRATIVE: CASE EVENT DATE: 2021
